FAERS Safety Report 5412538-9 (Version None)
Quarter: 2007Q3

REPORT INFORMATION
  Report Type: 
  Country: None (occurrence: None)
  Receive Date: 20070813
  Receipt Date: 20070808
  Transmission Date: 20080115
  Serious: Yes (Hospitalization)
  Sender: FDA-Public Use
  Company Number: B0482562A

PATIENT
  Age: 56 Year
  Sex: Male
  Weight: 50 kg

DRUGS (12)
  1. ZEFFIX [Suspect]
     Indication: VIRAL INFECTION
     Dosage: 100MG PER DAY
     Route: 048
     Dates: end: 20070621
  2. CLAFORAN [Suspect]
     Route: 042
     Dates: start: 20070610, end: 20070620
  3. KALETRA [Suspect]
     Dosage: 5ML TWICE PER DAY
     Route: 048
     Dates: end: 20070621
  4. TELZIR [Suspect]
     Dosage: 700MG PER DAY
     Route: 048
     Dates: end: 20070621
  5. ACTRAPID [Concomitant]
  6. TRIATEC [Concomitant]
  7. LASIX [Concomitant]
  8. TENORMIN [Concomitant]
  9. EUPRESSYL [Concomitant]
  10. NEXIUM [Concomitant]
  11. KAYEXALATE [Concomitant]
  12. CALCIPARINE [Concomitant]

REACTIONS (8)
  - ACUTE PULMONARY OEDEMA [None]
  - ANAEMIA [None]
  - CHOLELITHIASIS [None]
  - LEUKOCYTOSIS [None]
  - LIVER DISORDER [None]
  - OEDEMATOUS PANCREATITIS [None]
  - PANCREATIC NECROSIS [None]
  - PANCREATITIS ACUTE [None]
